FAERS Safety Report 6964007-2 (Version None)
Quarter: 2010Q3

REPORT INFORMATION
  Report Type: 
  Country: None (occurrence: None)
  Receive Date: 20100902
  Receipt Date: 20100902
  Transmission Date: 20110219
  Serious: Yes (Other)
  Sender: FDA-Public Use
  Company Number: None

PATIENT
  Sex: Female
  Weight: 62.1428 kg

DRUGS (1)
  1. CLINDAMYCIN HCL [Suspect]
     Indication: CELLULITIS
     Dosage: 300MG EVERY 6 HOURS PO
     Route: 048
     Dates: start: 20100810, end: 20100820

REACTIONS (4)
  - DERMATITIS EXFOLIATIVE [None]
  - FOOD ALLERGY [None]
  - RASH [None]
  - URINARY TRACT INFECTION [None]
